FAERS Safety Report 7137559 (Version 10)
Quarter: 2012Q4

REPORT INFORMATION
  Report Type: 
  Country: US (occurrence: US)
  Receive Date: 20091002
  Receipt Date: 20120905
  Transmission Date: 20130627
  Serious: Yes (Hospitalization, Other)
  Sender: FDA-Public Use
  Company Number: US-ASTRAZENECA-2008UW21949

PATIENT
  Age: 71 Year
  Sex: Female
  Weight: 59.9 kg

DRUGS (2)
  1. ARIMIDEX [Suspect]
     Indication: BREAST CANCER
     Route: 048
     Dates: start: 20080603
  2. PAXIL [Concomitant]
     Route: 048

REACTIONS (26)
  - Neoplasm malignant [Unknown]
  - Intervertebral disc protrusion [Unknown]
  - Malaise [Unknown]
  - Tremor [Not Recovered/Not Resolved]
  - Gait disturbance [Unknown]
  - Back pain [Unknown]
  - Myalgia [Unknown]
  - Pain in extremity [Unknown]
  - Adverse event [Unknown]
  - Sciatica [Not Recovered/Not Resolved]
  - Mental disorder [Unknown]
  - Chest pain [Unknown]
  - Aphagia [Unknown]
  - Stress [Unknown]
  - Weight decreased [Unknown]
  - Insomnia [Unknown]
  - Dyspnoea [Unknown]
  - Malaise [Unknown]
  - Dizziness [Unknown]
  - Breast pain [Unknown]
  - Pain [Unknown]
  - Fear [Unknown]
  - Asthenia [Unknown]
  - Fatigue [Unknown]
  - Hyperhidrosis [Unknown]
  - Drug dose omission [Unknown]
